FAERS Safety Report 19180308 (Version 1)
Quarter: 2021Q2

REPORT INFORMATION
  Report Type: Spontaneous
  Country: US (occurrence: US)
  Receive Date: 20210426
  Receipt Date: 20210426
  Transmission Date: 20210717
  Serious: No
  Sender: FDA-Public Use
  Company Number: None

PATIENT
  Age: 72 Year
  Sex: Female
  Weight: 75.6 kg

DRUGS (2)
  1. MULTIVITAMIN [Concomitant]
     Active Substance: VITAMINS
  2. SALONPAS (CAMPHOR (SYNTHETIC)\MENTHOL\METHYL SALICYLATE) [Suspect]
     Active Substance: CAMPHOR (SYNTHETIC)\MENTHOL\METHYL SALICYLATE
     Indication: PAIN
     Dosage: ?          QUANTITY:1 PATCH(ES);?
     Route: 061

REACTIONS (6)
  - Blister [None]
  - Application site swelling [None]
  - Crying [None]
  - Rash [None]
  - Hypoaesthesia [None]
  - Application site erythema [None]

NARRATIVE: CASE EVENT DATE: 20210402
